FAERS Safety Report 4863710-8 (Version None)
Quarter: 2005Q4

REPORT INFORMATION
  Report Type: 
  Country: None (occurrence: None)
  Receive Date: 20051222
  Receipt Date: 20051104
  Transmission Date: 20060501
  Serious: No
  Sender: FDA-Public Use
  Company Number: US-GLAXOSMITHKLINE-A0580933A

PATIENT
  Age: 57 Year
  Sex: Female

DRUGS (9)
  1. FLOVENT [Suspect]
     Indication: DRUG USE FOR UNKNOWN INDICATION
     Dosage: 2PUFF TWICE PER DAY
     Route: 055
  2. SEREVENT [Concomitant]
  3. AVANDAMET [Concomitant]
  4. NORVASC [Concomitant]
  5. LIPITOR [Concomitant]
  6. ZYRTEC [Concomitant]
  7. MAGNESIUM OXIDE [Concomitant]
  8. LISINOPRIL [Concomitant]
  9. TRIAMTERENE AND HYDROCHLOROTHIAZIDE [Concomitant]

REACTIONS (2)
  - FUNGAL INFECTION [None]
  - PHARMACEUTICAL PRODUCT COMPLAINT [None]
